FAERS Safety Report 9381730 (Version 3)
Quarter: 2013Q3

REPORT INFORMATION
  Report Type: Spontaneous
  Country: IT (occurrence: IT)
  Receive Date: 20130703
  Receipt Date: 20130905
  Transmission Date: 20140515
  Serious: Yes (Other)
  Sender: FDA-Public Use
  Company Number: IT-PFIZER INC-2013196381

PATIENT
  Age: 45 Year
  Sex: Female

DRUGS (2)
  1. PROVERA [Suspect]
     Indication: UTERINE CANCER
     Dosage: 1000 MG, TOTAL DOSE
     Route: 048
     Dates: start: 20130518, end: 20130518
  2. DEPALGOS [Suspect]
     Indication: PAIN
     Dosage: 2 DF, TOTAL DOSE
     Route: 048
     Dates: start: 20130518, end: 20130518

REACTIONS (5)
  - Nausea [Recovering/Resolving]
  - Vertigo [Recovering/Resolving]
  - Psychomotor skills impaired [Recovering/Resolving]
  - Vomiting [Recovering/Resolving]
  - Hot flush [Recovering/Resolving]
